FAERS Safety Report 5675174-5 (Version None)
Quarter: 2008Q1

REPORT INFORMATION
  Report Type: 
  Country: None (occurrence: None)
  Receive Date: 20080320
  Receipt Date: 20080314
  Transmission Date: 20080703
  Serious: Yes (Hospitalization)
  Sender: FDA-Public Use
  Company Number: ES-PURDUE-GBR_2008_0003839

PATIENT
  Age: 83 Year
  Sex: Male

DRUGS (12)
  1. SEVREDOL TABLETS 20 MG [Suspect]
     Indication: PROSTATE CANCER
     Dosage: 20 MG, DAILY
     Route: 048
     Dates: start: 20070806
  2. DOCETAXEL [Suspect]
     Indication: PROSTATE CANCER
     Dosage: 123.9 MG, EVERY THREE WEEKS
     Route: 042
     Dates: start: 20071228
  3. PREDNISONE TAB [Concomitant]
     Indication: PROSTATE CANCER
     Dosage: 5 MG, BID
     Route: 048
     Dates: start: 20071227, end: 20080116
  4. DURAGESIC-100 [Concomitant]
     Indication: DRUG USE FOR UNKNOWN INDICATION
     Dosage: 200 MCG, UNK
     Route: 062
     Dates: start: 20060101
  5. ACTIQ [Concomitant]
     Indication: DRUG USE FOR UNKNOWN INDICATION
     Dosage: 800 MCG, UNK
     Route: 048
     Dates: start: 20070806
  6. IBUPROFEN [Concomitant]
     Indication: DRUG USE FOR UNKNOWN INDICATION
     Dosage: 600 MG, UNK
     Route: 048
     Dates: start: 20060101
  7. OMEPRAZOLE [Concomitant]
     Indication: DRUG USE FOR UNKNOWN INDICATION
     Dosage: UNK, UNK
     Route: 048
     Dates: start: 20060101
  8. CP-751, 871 [Suspect]
     Indication: PROSTATE CANCER
     Dosage: 1280 MG, EVERY 3 WEEKS
     Route: 031
     Dates: start: 20071228
  9. OMNIC [Concomitant]
     Indication: DRUG USE FOR UNKNOWN INDICATION
     Route: 048
     Dates: start: 20060101
  10. LACTITOL [Concomitant]
     Indication: DRUG USE FOR UNKNOWN INDICATION
     Route: 048
     Dates: start: 20070806
  11. DIAZEPAM [Concomitant]
     Indication: DRUG USE FOR UNKNOWN INDICATION
     Route: 048
     Dates: start: 20060101
  12. DECAPEPTYL [Concomitant]
     Indication: DRUG USE FOR UNKNOWN INDICATION
     Route: 030
     Dates: start: 20060101

REACTIONS (1)
  - FAECALOMA [None]
